FAERS Safety Report 24288273 (Version 1)
Quarter: 2024Q3

REPORT INFORMATION
  Report Type: Spontaneous
  Country: DE (occurrence: DE)
  Receive Date: 20240905
  Receipt Date: 20240905
  Transmission Date: 20241017
  Serious: Yes (Other)
  Sender: SANDOZ
  Company Number: DE-BAXTER-2021BAX000907

PATIENT
  Age: 66 Year
  Sex: Male

DRUGS (14)
  1. CYTARABINE [Suspect]
     Active Substance: CYTARABINE
     Indication: Central nervous system lymphoma
     Dosage: OVER 3 HOURS PER INFUSION, CYCLE C, DAY 1 AND 2
     Route: 042
  2. CYTARABINE [Suspect]
     Active Substance: CYTARABINE
     Dosage: CYCLE A AND B, DAY 5
     Route: 050
  3. CYTARABINE [Suspect]
     Active Substance: CYTARABINE
     Dosage: CYCLE C, DAY 7
     Route: 050
  4. DECADRON (DEXAMETHASONE SODIUM PHOSPHATE) [Suspect]
     Active Substance: DEXAMETHASONE SODIUM PHOSPHATE
     Indication: Central nervous system lymphoma
     Dosage: BSA, CYCLE A AND B (DAY 1, 2, 3, 4 AND 5)
     Route: 048
  5. DECADRON (DEXAMETHASONE SODIUM PHOSPHATE) [Suspect]
     Active Substance: DEXAMETHASONE SODIUM PHOSPHATE
     Dosage: BSA, CYCLE C (DAY 1, 2, 3, 4 AND 5)
     Route: 048
  6. CYCLOPHOSPHAMIDE [Suspect]
     Active Substance: CYCLOPHOSPHAMIDE
     Indication: Central nervous system lymphoma
     Dosage: CYCLE B; DAY 2, 3, 4 AND 5
     Route: 042
  7. IFOSFAMIDE [Suspect]
     Active Substance: IFOSFAMIDE
     Indication: Central nervous system lymphoma
     Dosage: OVER 1 HOUR PER INFUSION, CYCLE A; DAY 2, 3, 4 AND 5
     Route: 042
  8. METHOTREXATE [Suspect]
     Active Substance: METHOTREXATE
     Indication: Central nervous system lymphoma
     Dosage: CYCLE A AND B (DAY 1, 2, 3, 4)
     Route: 050
  9. METHOTREXATE [Suspect]
     Active Substance: METHOTREXATE
     Dosage: CYCLE C (DAY 3, 4, 5 AND 6)
     Route: 050
  10. METHOTREXATE [Suspect]
     Active Substance: METHOTREXATE
     Dosage: UNKBSA (CYCLE A AND B, DAY 1; 0.5 G/M2 BSA OVER 30 MIN AND 4.5 G/M2 BSA OVER 23.5 HOURS PER INFUSION
     Route: 042
  11. PREDNISOLONE [Suspect]
     Active Substance: PREDNISOLONE
     Indication: Central nervous system lymphoma
     Dosage: CYCLE A AND B, DAY 1, 2, 3, 4
     Route: 050
  12. PREDNISOLONE [Suspect]
     Active Substance: PREDNISOLONE
     Dosage: CYCLE C, DAY 3, 4, 5 AND 6
     Route: 050
  13. VINCRISTINE [Suspect]
     Active Substance: VINCRISTINE
     Indication: Central nervous system lymphoma
     Dosage: CYCLE A AND B, DAY 1
     Route: 042
  14. VINDESINE [Suspect]
     Active Substance: VINDESINE
     Indication: Central nervous system lymphoma
     Dosage: CYCLE C, DAY 1
     Route: 042

REACTIONS (5)
  - Axillary vein thrombosis [Unknown]
  - Alopecia areata [Unknown]
  - Leukopenia [Unknown]
  - Deep vein thrombosis [Unknown]
  - Thrombocytopenia [Unknown]
